FAERS Safety Report 5323655-6 (Version None)
Quarter: 2007Q2

REPORT INFORMATION
  Report Type: 
  Country: None (occurrence: None)
  Receive Date: 20070507
  Receipt Date: 20070426
  Transmission Date: 20071010
  Serious: Yes (Hospitalization)
  Sender: FDA-Public Use
  Company Number: 430009M07DEU

PATIENT
  Age: 48 Year
  Sex: Female

DRUGS (5)
  1. NOVANTRONE [Suspect]
     Indication: MULTIPLE SCLEROSIS
     Dosage: 17 MG, INTRAVENOUS (NOT OTHERWISE SPECIFIED)
     Route: 042
     Dates: start: 20070315, end: 20070315
  2. METOCLOPRAMIDE /00041901/ [Concomitant]
  3. ONDANSETRON HCL [Concomitant]
  4. CITALOPRAM HYDROBROMIDE [Concomitant]
  5. PREDNISONE /00044701/ [Concomitant]

REACTIONS (5)
  - ANXIETY [None]
  - HALLUCINATION [None]
  - NAUSEA [None]
  - NIGHTMARE [None]
  - PERSECUTORY DELUSION [None]
